FAERS Safety Report 24696981 (Version 3)
Quarter: 2024Q4

REPORT INFORMATION
  Report Type: Spontaneous
  Country: RU (occurrence: RU)
  Receive Date: 20241204
  Receipt Date: 20241226
  Transmission Date: 20250115
  Serious: Yes (Other)
  Sender: ROCHE
  Company Number: RU-002147023-NVSC2024RU229466

PATIENT
  Age: 35 Year
  Sex: Female

DRUGS (2)
  1. OMALIZUMAB [Suspect]
     Active Substance: OMALIZUMAB
     Indication: Urticaria
     Dosage: 300 MG, Q4W
     Route: 050
  2. METHYLPREDNISOLONE [Concomitant]
     Active Substance: METHYLPREDNISOLONE
     Indication: Urticaria
     Dosage: UNK ( 3 TABLETS PER  DAY WITH A FREQUENCY OF 1 TIME IN 1-2 WEEKS.)
     Route: 065

REACTIONS (3)
  - Angioedema [Unknown]
  - Drug ineffective [Unknown]
  - Rash [Unknown]
